FAERS Safety Report 4437892-6 (Version None)
Quarter: 2004Q3

REPORT INFORMATION
  Report Type: 
  Country: None (occurrence: None)
  Receive Date: 20040831
  Receipt Date: 20040712
  Transmission Date: 20050211
  Serious: Yes (Death, Life-Threatening, Hospitalization, Disabling, Other)
  Sender: FDA-Public Use
  Company Number: GB-MERCK-0407GBR00120

PATIENT
  Age: 74 Year
  Sex: Female
  Weight: 120 kg

DRUGS (11)
  1. ACETAMINOPHEN AND PROPOXYPHENE HYDROCHLORIDE [Concomitant]
     Route: 065
     Dates: start: 19980302
  2. ASPIRIN [Concomitant]
     Route: 065
     Dates: start: 20010926
  3. BENDROFLUMETHIAZIDE [Concomitant]
     Route: 065
  4. BETAMETHASONE [Concomitant]
     Route: 061
     Dates: start: 20040524
  5. DIGOXIN [Concomitant]
     Route: 065
     Dates: start: 20040521
  6. DOXAZOSIN MESYLATE [Concomitant]
     Route: 065
     Dates: start: 20011116
  7. OLIVE OIL [Concomitant]
     Route: 065
     Dates: end: 20040423
  8. PERINDOPRIL [Concomitant]
     Route: 065
     Dates: start: 20010926
  9. VIOXX [Suspect]
     Indication: OSTEOARTHRITIS
     Route: 048
     Dates: start: 20000802, end: 20040624
  10. SIMVASTATIN [Concomitant]
     Route: 065
     Dates: start: 20040423
  11. WARFARIN [Concomitant]
     Route: 065
     Dates: start: 20040521

REACTIONS (1)
  - DUODENAL ULCER PERFORATION [None]
